FAERS Safety Report 5018331-3 (Version None)
Quarter: 2006Q2

REPORT INFORMATION
  Report Type: 
  Country: None (occurrence: None)
  Receive Date: 20060530
  Receipt Date: 20050523
  Transmission Date: 20061013
  Serious: Yes (Other)
  Sender: FDA-Public Use
  Company Number: 2005079624

PATIENT
  Age: 50 Year
  Sex: Male
  Weight: 83 kg

DRUGS (6)
  1. LYRICA [Suspect]
     Indication: MYELITIS TRANSVERSE
     Dosage: 150 MG (75 MG, 2 IN 1 D), ORAL
     Route: 048
     Dates: start: 20050401
  2. LYRICA [Suspect]
     Indication: NEURALGIA
     Dosage: 150 MG (75 MG, 2 IN 1 D), ORAL
     Route: 048
     Dates: start: 20050401
  3. IBUPROFEN [Concomitant]
  4. LANSOPRAZOLE [Concomitant]
  5. BENDROFLUMETHIAZIDE [Concomitant]
  6. PERINDOPRIL ERUMINE [Concomitant]

REACTIONS (1)
  - HYPERTENSION [None]
